FAERS Safety Report 15894278 (Version 1)
Quarter: 2019Q1

REPORT INFORMATION
  Report Type: Report from Study
  Country: US (occurrence: US)
  Receive Date: 20190131
  Receipt Date: 20190131
  Transmission Date: 20190417
  Serious: Yes (Other)
  Sender: FDA-Public Use
  Company Number: PHEH2019US003982

PATIENT
  Sex: Male

DRUGS (1)
  1. ENTRESTO [Suspect]
     Active Substance: SACUBITRIL\VALSARTAN
     Indication: PRODUCT USED FOR UNKNOWN INDICATION
     Dosage: UNK
     Route: 048

REACTIONS (6)
  - Atrial fibrillation [Unknown]
  - High density lipoprotein increased [Unknown]
  - Weight increased [Unknown]
  - Low density lipoprotein decreased [Unknown]
  - Decreased activity [Unknown]
  - Blood cholesterol increased [Unknown]
